FAERS Safety Report 24572422 (Version 2)
Quarter: 2024Q4

REPORT INFORMATION
  Report Type: Spontaneous
  Country: IR (occurrence: IR)
  Receive Date: 20241101
  Receipt Date: 20241108
  Transmission Date: 20250115
  Serious: Yes (Other)
  Sender: MERCK
  Company Number: IR-009507513-2410IRN012941

PATIENT
  Age: 33 Year
  Sex: Male
  Weight: 80 kg

DRUGS (1)
  1. KEYTRUDA [Suspect]
     Active Substance: PEMBROLIZUMAB
     Indication: Hodgkin^s disease recurrent
     Dosage: UNK
     Dates: start: 2022

REACTIONS (12)
  - Autologous bone marrow transplantation therapy [Unknown]
  - Hodgkin^s disease recurrent [Unknown]
  - Mucosal hypertrophy [Unknown]
  - Lymphadenopathy [Unknown]
  - Thyroid atrophy [Unknown]
  - Lymph node calcification [Unknown]
  - Hepatomegaly [Unknown]
  - Hepatic steatosis [Unknown]
  - Splenomegaly [Unknown]
  - Spleen disorder [Unknown]
  - Lymphadenopathy mediastinal [Unknown]
  - Therapeutic product effect decreased [Unknown]

NARRATIVE: CASE EVENT DATE: 20240722
